FAERS Safety Report 8349437-9 (Version None)
Quarter: 2012Q2

REPORT INFORMATION
  Report Type: 
  Country: None (occurrence: None)
  Receive Date: 20120510
  Receipt Date: 20120503
  Transmission Date: 20120825
  Serious: Yes (Hospitalization, Other)
  Sender: FDA-Public Use
  Company Number: ES-PFIZER INC-2012111463

PATIENT
  Age: 51 Year
  Sex: Male

DRUGS (7)
  1. FUROSEMIDE [Interacting]
     Indication: CARDIAC FAILURE
     Dosage: 40 MG, 2X/DAY
     Route: 048
     Dates: start: 20101228, end: 20110512
  2. AMIODARONE [Concomitant]
  3. HEXABRIX 320 [Interacting]
     Indication: CATHETERISATION CARDIAC ABNORMAL
     Dosage: 320 MG, 1X/DAY
     Route: 042
     Dates: start: 20110504, end: 20110504
  4. CARVEDILOL [Concomitant]
     Indication: CARDIOMYOPATHY ACUTE
     Dosage: 25 MG, 1X/DAY
     Route: 048
     Dates: start: 20040501, end: 20110512
  5. METFORMIN [Concomitant]
     Indication: DIABETES MELLITUS
     Dosage: 850 MG, 2X/DAY
     Route: 048
     Dates: start: 20100501, end: 20110512
  6. EPLERENONE [Suspect]
     Indication: CARDIAC FAILURE
     Dosage: 25 MG, 1X/DAY
     Route: 048
     Dates: start: 20110504, end: 20110504
  7. RAMIPRIL [Interacting]
     Indication: CARDIOMYOPATHY ACUTE
     Dosage: 5 MG, 1X/DAY
     Route: 048
     Dates: start: 20040501, end: 20110512

REACTIONS (13)
  - MALAISE [None]
  - SINUS BRADYCARDIA [None]
  - DRUG INTERACTION [None]
  - RENAL FAILURE [None]
  - HYPERKALAEMIA [None]
  - BUNDLE BRANCH BLOCK LEFT [None]
  - URINARY TRACT INFECTION [None]
  - LUNG INFILTRATION [None]
  - CHEST PAIN [None]
  - METABOLIC ACIDOSIS [None]
  - PYREXIA [None]
  - BRADYCARDIA [None]
  - HYPOTENSION [None]
